FAERS Safety Report 8597778-2 (Version None)
Quarter: 2012Q3

REPORT INFORMATION
  Report Type: 
  Country: None (occurrence: None)
  Receive Date: 20120816
  Receipt Date: 20120813
  Transmission Date: 20120928
  Serious: Yes (Death, Other)
  Sender: FDA-Public Use
  Company Number: PHHY2012AU043082

PATIENT
  Sex: Female

DRUGS (17)
  1. PREDNISOLONE [Concomitant]
  2. OSTELIN [Concomitant]
  3. ALDACTONE [Concomitant]
  4. CARDIPRIN [Concomitant]
  5. SOLONE [Concomitant]
  6. ZOLEDRONOC ACID [Suspect]
     Indication: OSTEOPOROSIS
     Dosage: 5 MG
     Route: 042
     Dates: start: 20110526
  7. RISPERIDONE [Concomitant]
  8. METOPROLOL TARTRATE [Concomitant]
  9. PANTOPRAZOLE [Concomitant]
  10. FUROSEMIDE [Concomitant]
  11. ACETAMINOPHEN [Concomitant]
  12. RISPERDAL [Concomitant]
  13. SEREPAX [Concomitant]
  14. ASPIRIN [Concomitant]
  15. SPIRONOLACTONE [Concomitant]
  16. PANTOPRAZOLE [Concomitant]
  17. LASIX [Concomitant]

REACTIONS (6)
  - GENERAL PHYSICAL HEALTH DETERIORATION [None]
  - PELVIC FRACTURE [None]
  - PUBIS FRACTURE [None]
  - CACHEXIA [None]
  - DEMENTIA [None]
  - CARDIAC FAILURE [None]
